FAERS Safety Report 7150184-X (Version None)
Quarter: 2010Q4

REPORT INFORMATION
  Report Type: 
  Country: None (occurrence: None)
  Receive Date: 20101207
  Receipt Date: 20101207
  Transmission Date: 20110411
  Serious: Yes (Other)
  Sender: FDA-Public Use
  Company Number: None

PATIENT
  Age: 40 Year
  Sex: Male
  Weight: 127.0072 kg

DRUGS (2)
  1. CYMBALTA [Suspect]
     Indication: DISEASE RECURRENCE
     Dosage: 60MG DAILY IN AM PO
     Route: 048
     Dates: start: 20061101, end: 20101130
  2. CYMBALTA [Suspect]
     Indication: MAJOR DEPRESSION
     Dosage: 60MG DAILY IN AM PO
     Route: 048
     Dates: start: 20061101, end: 20101130

REACTIONS (14)
  - ANGER [None]
  - ARTHRALGIA [None]
  - ASTHENIA [None]
  - DISTURBANCE IN ATTENTION [None]
  - DIZZINESS [None]
  - DRUG INEFFECTIVE [None]
  - FATIGUE [None]
  - HEART RATE INCREASED [None]
  - HYPERHIDROSIS [None]
  - MYALGIA [None]
  - NAUSEA [None]
  - PAIN [None]
  - PARAESTHESIA [None]
  - WITHDRAWAL SYNDROME [None]
